FAERS Safety Report 24273966 (Version 1)
Quarter: 2024Q3

REPORT INFORMATION
  Report Type: Spontaneous
  Country: CA (occurrence: CA)
  Receive Date: 20240902
  Receipt Date: 20240902
  Transmission Date: 20241016
  Serious: Yes (Other)
  Sender: PFIZER
  Company Number: CA-PFIZER INC-202300450161

PATIENT
  Age: 59 Year
  Sex: Male

DRUGS (3)
  1. RUXIENCE [Suspect]
     Active Substance: RITUXIMAB-PVVR
     Indication: Granulomatosis with polyangiitis
     Dosage: 820 MG, WEEKLY FOR 4 WEEKS
     Route: 042
     Dates: start: 20231123, end: 20231214
  2. RUXIENCE [Suspect]
     Active Substance: RITUXIMAB-PVVR
     Dosage: 820 MG, WEEKLY FOR 4 WEEKS
     Route: 042
     Dates: start: 20231214
  3. RUXIENCE [Suspect]
     Active Substance: RITUXIMAB-PVVR
     Dosage: 820 MG, WEEKLY FOR 4 WEEKS
     Route: 042
     Dates: start: 20231214

REACTIONS (6)
  - Granulomatosis with polyangiitis [Unknown]
  - Disease recurrence [Unknown]
  - Asthenia [Unknown]
  - Blood pressure fluctuation [Recovered/Resolved]
  - Heart rate irregular [Recovered/Resolved]
  - Off label use [Unknown]

NARRATIVE: CASE EVENT DATE: 20230101
